FAERS Safety Report 20421898 (Version 1)
Quarter: 2022Q1

REPORT INFORMATION
  Report Type: Spontaneous
  Country: CN (occurrence: CN)
  Receive Date: 20220203
  Receipt Date: 20220203
  Transmission Date: 20220424
  Serious: Yes (Other)
  Sender: FDA-Public Use
  Company Number: CN-ABBVIE-22K-035-4263283-00

PATIENT
  Age: 47 Year
  Sex: Male
  Weight: 75 kg

DRUGS (5)
  1. VALPROATE SODIUM [Suspect]
     Active Substance: VALPROATE SODIUM
     Indication: Epilepsy
     Route: 065
     Dates: start: 20190213, end: 20190215
  2. LOSEC [Suspect]
     Active Substance: OMEPRAZOLE
     Indication: Head injury
     Route: 041
     Dates: start: 20190213, end: 20190216
  3. PIRACETAM [Suspect]
     Active Substance: PIRACETAM
     Indication: Head injury
     Route: 041
     Dates: start: 20190213, end: 20190216
  4. CEFOPERAZONE SODIUM\SULBACTAM SODIUM [Suspect]
     Active Substance: CEFOPERAZONE SODIUM\SULBACTAM SODIUM
     Indication: Head injury
     Route: 041
     Dates: start: 20190213, end: 20190216
  5. SODIUM CHLORIDE [Concomitant]
     Active Substance: SODIUM CHLORIDE
     Indication: Product used for unknown indication
     Dates: start: 20190213, end: 20190216

REACTIONS (1)
  - Hepatic function abnormal [Recovering/Resolving]

NARRATIVE: CASE EVENT DATE: 20190216
